FAERS Safety Report 7562103-2 (Version None)
Quarter: 2011Q2

REPORT INFORMATION
  Report Type: 
  Country: None (occurrence: None)
  Receive Date: 20110622
  Receipt Date: 20110614
  Transmission Date: 20111010
  Serious: Yes (Hospitalization)
  Sender: FDA-Public Use
  Company Number: US-BIOGENIDEC-2010BI015257

PATIENT
  Age: 52 Year
  Sex: Female

DRUGS (2)
  1. AVONEX [Suspect]
     Indication: MULTIPLE SCLEROSIS
     Route: 030
     Dates: start: 19970401, end: 20030101
  2. AVONEX [Suspect]
     Route: 030
     Dates: start: 20030101

REACTIONS (11)
  - SECONDARY PROGRESSIVE MULTIPLE SCLEROSIS [None]
  - HEMIPARESIS [None]
  - ARTHRALGIA [None]
  - FALL [None]
  - ARTHRITIS [None]
  - KNEE ARTHROPLASTY [None]
  - LOWER LIMB FRACTURE [None]
  - LOSS OF CONTROL OF LEGS [None]
  - JOINT SWELLING [None]
  - JOINT SPRAIN [None]
  - ROAD TRAFFIC ACCIDENT [None]
